FAERS Safety Report 7068593-6 (Version None)
Quarter: 2010Q4

REPORT INFORMATION
  Report Type: 
  Country: None (occurrence: None)
  Receive Date: 20101027
  Receipt Date: 20101027
  Transmission Date: 20110411
  Serious: Yes (Life-Threatening, Hospitalization, Other)
  Sender: FDA-Public Use
  Company Number: None

PATIENT
  Age: 7 Month
  Sex: Female
  Weight: 8.6864 kg

DRUGS (1)
  1. TEETHING TABLETS HYLAND [Suspect]
     Indication: TEETHING
     Dosage: 3 TABLETS BID SL
     Route: 060
     Dates: start: 20100701, end: 20100922

REACTIONS (1)
  - CONVULSION [None]
